FAERS Safety Report 21715499 (Version 1)
Quarter: 2022Q4

REPORT INFORMATION
  Report Type: Spontaneous
  Country: US (occurrence: US)
  Receive Date: 20221212
  Receipt Date: 20221212
  Transmission Date: 20230113
  Serious: No
  Sender: FDA-Public Use
  Company Number: US-ALLERGAN-2226802US

PATIENT
  Sex: Female

DRUGS (1)
  1. NEBIVOLOL [Suspect]
     Active Substance: NEBIVOLOL
     Indication: Hypertension
     Dosage: UNK

REACTIONS (7)
  - Illness [Unknown]
  - Gingival pain [Unknown]
  - Night sweats [Unknown]
  - Back pain [Unknown]
  - Malaise [Unknown]
  - Product dose omission issue [Unknown]
  - Hypertension [Unknown]
